FAERS Safety Report 21086987 (Version 1)
Quarter: 2022Q3

REPORT INFORMATION
  Report Type: Spontaneous
  Country: US (occurrence: None)
  Receive Date: 20220714
  Receipt Date: 20220714
  Transmission Date: 20221027
  Serious: No
  Sender: FDA-Public Use
  Company Number: None

PATIENT
  Age: 80 Year
  Sex: Male

DRUGS (1)
  1. DABIGATRAN [Suspect]
     Active Substance: DABIGATRAN
     Indication: Atrial fibrillation
     Dosage: 150 MG BID PO
     Dates: start: 20170508, end: 20220401

REACTIONS (5)
  - Embolic stroke [None]
  - Vasogenic cerebral oedema [None]
  - Therapy cessation [None]
  - Carotid artery stenosis [None]
  - Seizure [None]

NARRATIVE: CASE EVENT DATE: 20220422
